FAERS Safety Report 15754441 (Version 1)
Quarter: 2018Q4

REPORT INFORMATION
  Report Type: Spontaneous
  Country: FR (occurrence: FR)
  Receive Date: 20181224
  Receipt Date: 20181224
  Transmission Date: 20190205
  Serious: Yes (Death, Other)
  Sender: FDA-Public Use
  Company Number: FR-BRISTOL-MYERS SQUIBB COMPANY-BMS-2018-119056

PATIENT
  Age: 71 Year
  Sex: Male
  Weight: 105 kg

DRUGS (1)
  1. METFORMIN HYDROCHLORIDE. [Suspect]
     Active Substance: METFORMIN HYDROCHLORIDE
     Indication: DIABETES MELLITUS
     Dosage: UNK
     Route: 048
     Dates: end: 20181121

REACTIONS (4)
  - Hyperkalaemia [Fatal]
  - Shock [Fatal]
  - Lactic acidosis [Fatal]
  - Drug level increased [Fatal]

NARRATIVE: CASE EVENT DATE: 20081121
